FAERS Safety Report 7780876-0 (Version None)
Quarter: 2011Q3

REPORT INFORMATION
  Report Type: 
  Country: None (occurrence: None)
  Receive Date: 20110927
  Receipt Date: 20110926
  Transmission Date: 20111222
  Serious: Yes (Disabling)
  Sender: FDA-Public Use
  Company Number: GB-TEVA-302290ISR

PATIENT
  Age: 33 Year
  Sex: Male
  Weight: 112.03 kg

DRUGS (5)
  1. SALMETEROL XINAFOATE [Concomitant]
  2. LANSOPRAZOLE [Concomitant]
  3. VENTOLIN HFA [Concomitant]
  4. QVAR 40 [Concomitant]
  5. TRAMADOL HCL [Suspect]
     Indication: SCIATICA
     Dosage: 50MG UP TO TDS (TOTAL OF 100MG WAS TAKEN).
     Route: 048
     Dates: start: 20110911, end: 20110911

REACTIONS (3)
  - INSOMNIA [None]
  - HYPERHIDROSIS [None]
  - SOMNOLENCE [None]
